FAERS Safety Report 12781242 (Version 21)
Quarter: 2022Q2

REPORT INFORMATION
  Report Type: Report from Study
  Country: CA (occurrence: CA)
  Receive Date: 20160926
  Receipt Date: 20220410
  Transmission Date: 20220721
  Serious: Yes (Hospitalization, Other)
  Sender: FDA-Public Use
  Company Number: PHHY2015CA109453

PATIENT
  Sex: Female

DRUGS (19)
  1. COSENTYX [Suspect]
     Active Substance: SECUKINUMAB
     Indication: Psoriasis
     Dosage: 300 MG, Q2W
     Route: 058
     Dates: start: 20150814, end: 20150904
  2. COSENTYX [Suspect]
     Active Substance: SECUKINUMAB
     Dosage: 300 MG, QMO
     Route: 058
     Dates: start: 20150911
  3. COSENTYX [Suspect]
     Active Substance: SECUKINUMAB
     Dosage: 450 MG, QMO
     Route: 058
  4. COSENTYX [Suspect]
     Active Substance: SECUKINUMAB
     Dosage: UNK
     Route: 065
     Dates: start: 20160518
  5. COSENTYX [Suspect]
     Active Substance: SECUKINUMAB
     Dosage: 300 MG, QMO
     Route: 058
     Dates: start: 20160811
  6. COSENTYX [Suspect]
     Active Substance: SECUKINUMAB
     Dosage: 300 MG, QMO
     Route: 058
     Dates: start: 20170114
  7. COSENTYX [Suspect]
     Active Substance: SECUKINUMAB
     Dosage: 300 MG, QMO
     Route: 058
     Dates: start: 201705
  8. COSENTYX [Suspect]
     Active Substance: SECUKINUMAB
     Dosage: 300 MG, QMO
     Route: 058
     Dates: start: 20180613
  9. COSENTYX [Suspect]
     Active Substance: SECUKINUMAB
     Dosage: 300 MG, QMO
     Route: 058
     Dates: start: 20181125
  10. COSENTYX [Suspect]
     Active Substance: SECUKINUMAB
     Dosage: 300 MG, QMO
     Route: 058
  11. COSENTYX [Suspect]
     Active Substance: SECUKINUMAB
     Dosage: UNK
     Route: 065
     Dates: start: 20190613
  12. COSENTYX [Suspect]
     Active Substance: SECUKINUMAB
     Dosage: 300 MG, Q2W
     Route: 058
  13. METHOTREXATE [Concomitant]
     Active Substance: METHOTREXATE
     Indication: Psoriasis
     Dosage: UNK
     Route: 065
  14. METHOTREXATE [Concomitant]
     Active Substance: METHOTREXATE
     Indication: Chest pain
  15. BETAMETHASONE DIPROPIONATE\CALCIPOTRIENE [Concomitant]
     Active Substance: BETAMETHASONE DIPROPIONATE\CALCIPOTRIENE
     Indication: Product used for unknown indication
     Dosage: UNK
     Route: 065
  16. CLOBETASOL [Concomitant]
     Active Substance: CLOBETASOL
     Indication: Product used for unknown indication
     Dosage: UNK
     Route: 065
  17. HUMIRA [Concomitant]
     Active Substance: ADALIMUMAB
     Indication: Illness
     Dosage: UNK
     Route: 065
  18. HUMIRA [Concomitant]
     Active Substance: ADALIMUMAB
     Indication: Psoriasis
  19. CALCIPOTRIENE AND BETAMETHASONE DIPROPIONATE [Concomitant]
     Active Substance: BETAMETHASONE DIPROPIONATE\CALCIPOTRIENE
     Indication: Product used for unknown indication
     Dosage: UNK
     Route: 065

REACTIONS (33)
  - Cellulitis [Unknown]
  - Soft tissue swelling [Unknown]
  - Pyrexia [Recovered/Resolved]
  - Pyrexia [Unknown]
  - Diverticulitis [Unknown]
  - Pneumonia [Unknown]
  - Arthralgia [Unknown]
  - Stress [Not Recovered/Not Resolved]
  - Hypoacusis [Unknown]
  - Breast pain [Unknown]
  - Joint swelling [Unknown]
  - Peripheral swelling [Unknown]
  - Erythema [Unknown]
  - Musculoskeletal chest pain [Unknown]
  - Pain [Unknown]
  - Bone pain [Unknown]
  - Abdominal pain upper [Unknown]
  - Pain in extremity [Unknown]
  - Fatigue [Unknown]
  - Insomnia [Unknown]
  - Malaise [Unknown]
  - Infection [Unknown]
  - Back injury [Unknown]
  - Psoriasis [Not Recovered/Not Resolved]
  - Skin plaque [Recovered/Resolved]
  - Rash [Unknown]
  - Skin ulcer [Unknown]
  - Skin exfoliation [Unknown]
  - Skin plaque [Unknown]
  - Product storage error [Unknown]
  - Inappropriate schedule of product administration [Unknown]
  - Drug ineffective [Unknown]
  - Prescribed overdose [Unknown]

NARRATIVE: CASE EVENT DATE: 20150101
